FAERS Safety Report 15296263 (Version 1)
Quarter: 2018Q3

REPORT INFORMATION
  Report Type: Spontaneous
  Country: JP (occurrence: JP)
  Receive Date: 20180820
  Receipt Date: 20180820
  Transmission Date: 20181010
  Serious: Yes (Other)
  Sender: FDA-Public Use
  Company Number: JP-ACCORD-070846

PATIENT
  Age: 42 Year
  Sex: Female

DRUGS (1)
  1. DOCETAXEL. [Suspect]
     Active Substance: DOCETAXEL
     Indication: METASTATIC SQUAMOUS CELL CARCINOMA
     Dates: start: 20150609, end: 20150609

REACTIONS (5)
  - Drug hypersensitivity [Recovered/Resolved]
  - Palpitations [Unknown]
  - Dyspnoea [Recovered/Resolved]
  - Respiratory distress [Unknown]
  - Rash [Recovered/Resolved]

NARRATIVE: CASE EVENT DATE: 20150609
